FAERS Safety Report 5977242-7 (Version None)
Quarter: 2008Q4

REPORT INFORMATION
  Report Type: 
  Country: None (occurrence: None)
  Receive Date: 20081203
  Receipt Date: 20081125
  Transmission Date: 20090506
  Serious: No
  Sender: FDA-Public Use
  Company Number: US-BAYER-US-2007-041750

PATIENT
  Age: 29 Year
  Sex: Female
  Weight: 78 kg

DRUGS (4)
  1. MIRENA [Suspect]
     Indication: CONTRACEPTION
     Route: 015
     Dates: start: 20070927
  2. VITAMINS [Concomitant]
  3. DARVOCET [Concomitant]
  4. ULTRAM [Concomitant]

REACTIONS (3)
  - DRUG EXPOSURE DURING PREGNANCY [None]
  - IUCD COMPLICATION [None]
  - MEDICATION ERROR [None]
